FAERS Safety Report 25620404 (Version 2)
Quarter: 2025Q3

REPORT INFORMATION
  Report Type: Spontaneous
  Country: US (occurrence: US)
  Receive Date: 20250730
  Receipt Date: 20250815
  Transmission Date: 20251021
  Serious: Yes (Other)
  Sender: AUROBINDO
  Company Number: US-AUROBINDO-AUR-APL-2025-037811

PATIENT
  Sex: Female

DRUGS (2)
  1. FLUOXETINE HYDROCHLORIDE [Suspect]
     Active Substance: FLUOXETINE HYDROCHLORIDE
     Indication: Depression
     Route: 065
  2. TRAZODONE [Suspect]
     Active Substance: TRAZODONE HYDROCHLORIDE
     Indication: Sleep disorder
     Route: 065

REACTIONS (18)
  - Arrhythmia [Unknown]
  - Angina pectoris [Unknown]
  - Paralysis [Unknown]
  - Lethargy [Unknown]
  - Vision blurred [Unknown]
  - Somnolence [Unknown]
  - Mobility decreased [Unknown]
  - Mood altered [Unknown]
  - Fine motor skill dysfunction [Unknown]
  - Sedation [Unknown]
  - Panic disorder [Unknown]
  - Restlessness [Unknown]
  - Anxiety [Unknown]
  - Depressive symptom [Unknown]
  - Bedridden [Unknown]
  - Drug ineffective [Unknown]
  - Suspected product tampering [Unknown]
  - Product quality issue [Unknown]
